FAERS Safety Report 17794407 (Version 1)
Quarter: 2020Q2

REPORT INFORMATION
  Report Type: Spontaneous
  Country: FR (occurrence: FR)
  Receive Date: 20200515
  Receipt Date: 20200515
  Transmission Date: 20200714
  Serious: Yes (Hospitalization, Other)
  Sender: FDA-Public Use
  Company Number: FR-INDIVIOR US-INDV-124807-2020

PATIENT
  Age: 51 Year
  Sex: Male

DRUGS (3)
  1. BUPRENORPHINE. [Suspect]
     Active Substance: BUPRENORPHINE
     Indication: PRODUCT USED FOR UNKNOWN INDICATION
     Dosage: UNK
     Route: 065
  2. OXAZEPAM. [Suspect]
     Active Substance: OXAZEPAM
     Indication: PRODUCT USED FOR UNKNOWN INDICATION
     Dosage: UNK
     Route: 065
  3. ZOPICLONE [Suspect]
     Active Substance: ZOPICLONE
     Indication: PRODUCT USED FOR UNKNOWN INDICATION
     Dosage: UNK
     Route: 065

REACTIONS (8)
  - Hypoxia [Recovering/Resolving]
  - Miosis [Recovered/Resolved]
  - Coma [Recovering/Resolving]
  - Hypothermia [Recovered/Resolved]
  - Tachycardia [Recovered/Resolved]
  - Hypercapnia [Recovering/Resolving]
  - Drug abuse [Not Recovered/Not Resolved]
  - Housebound [Not Recovered/Not Resolved]
